FAERS Safety Report 10034002 (Version 1)
Quarter: 2014Q1

REPORT INFORMATION
  Report Type: Spontaneous
  Country: US (occurrence: None)
  Receive Date: 20140324
  Receipt Date: 20140324
  Transmission Date: 20141002
  Serious: Yes (Other)
  Sender: FDA-Public Use
  Company Number: None

PATIENT
  Age: 75 Year
  Sex: Female
  Weight: 81.65 kg

DRUGS (1)
  1. NITROFURANTOIN [Suspect]
     Indication: INFECTION
     Route: 048
     Dates: start: 20140305, end: 20140311

REACTIONS (2)
  - Paralysis [None]
  - Product substitution issue [None]
